FAERS Safety Report 23552626 (Version 2)
Quarter: 2024Q1

REPORT INFORMATION
  Report Type: Spontaneous
  Country: IT (occurrence: IT)
  Receive Date: 20240222
  Receipt Date: 20240227
  Transmission Date: 20240410
  Serious: Yes (Other)
  Sender: FDA-Public Use
  Company Number: IT-SUN PHARMACEUTICAL INDUSTRIES LTD-2024RR-432096

PATIENT
  Sex: Female

DRUGS (5)
  1. ATORVASTATIN [Suspect]
     Active Substance: ATORVASTATIN
     Indication: Hypertension
     Dosage: 40 MG/ DAY
     Route: 048
     Dates: start: 20181128, end: 20181130
  2. ROSUVASTATIN [Suspect]
     Active Substance: ROSUVASTATIN
     Indication: Hypertension
     Dosage: UNK
     Route: 048
     Dates: end: 20200801
  3. RAMIPRIL [Suspect]
     Active Substance: RAMIPRIL
     Indication: Hypertension
     Dosage: 5 MG/ DAY
     Route: 048
     Dates: start: 20181206, end: 20190201
  4. EZETIMIBE [Suspect]
     Active Substance: EZETIMIBE
     Indication: Hypertension
     Dosage: UNK
     Route: 048
     Dates: end: 20200801
  5. CLOPIDOGREL [Concomitant]
     Active Substance: CLOPIDOGREL BISULFATE
     Indication: Hypertension
     Dosage: UNK
     Route: 048
     Dates: start: 20181111

REACTIONS (5)
  - Loss of consciousness [Recovered/Resolved]
  - Syncope [Recovered/Resolved]
  - Joint swelling [Recovering/Resolving]
  - Pain [Recovering/Resolving]
  - Abdominal pain upper [Recovered/Resolved]
